FAERS Safety Report 7237959-3 (Version None)
Quarter: 2011Q1

REPORT INFORMATION
  Report Type: 
  Country: None (occurrence: None)
  Receive Date: 20110121
  Receipt Date: 20110110
  Transmission Date: 20110831
  Serious: Yes (Hospitalization)
  Sender: FDA-Public Use
  Company Number: GXBR2011US00470

PATIENT
  Sex: Female
  Weight: 68.027 kg

DRUGS (2)
  1. NITROFURANTOIN CAPSULES USP [Suspect]
     Indication: URINARY TRACT INFECTION
     Dosage: 100 MG, QD
     Route: 048
     Dates: start: 20100113, end: 20100114
  2. TYLENOL-500 [Concomitant]
     Indication: PAIN
     Dosage: UNK

REACTIONS (8)
  - LOSS OF CONSCIOUSNESS [None]
  - HEAD INJURY [None]
  - URINARY INCONTINENCE [None]
  - MUSCULAR WEAKNESS [None]
  - SOMNOLENCE [None]
  - FLUID INTAKE REDUCED [None]
  - DEHYDRATION [None]
  - PAIN IN EXTREMITY [None]
